FAERS Safety Report 19203243 (Version 2)
Quarter: 2021Q2

REPORT INFORMATION
  Report Type: Report from Study
  Country: BR (occurrence: BR)
  Receive Date: 20210430
  Receipt Date: 20210522
  Transmission Date: 20210717
  Serious: Yes (Disabling, Other)
  Sender: FDA-Public Use
  Company Number: NVSC2021BR088414

PATIENT
  Age: 58 Year
  Sex: Male
  Weight: 90 kg

DRUGS (5)
  1. CLONAZEPAM. [Concomitant]
     Active Substance: CLONAZEPAM
     Indication: MUSCLE RELAXANT THERAPY
     Dosage: UNK, QD
     Route: 048
     Dates: start: 202011
  2. GABAPENTIN. [Suspect]
     Active Substance: GABAPENTIN
     Indication: PAIN
     Dosage: UNK, TID
     Route: 048
     Dates: start: 202011
  3. VOTRIENT [Suspect]
     Active Substance: PAZOPANIB HYDROCHLORIDE
     Indication: METASTATIC RENAL CELL CARCINOMA
     Dosage: 2 DF, QD
     Route: 048
     Dates: start: 20210325
  4. VOTRIENT [Suspect]
     Active Substance: PAZOPANIB HYDROCHLORIDE
     Indication: CHEMOTHERAPY
  5. DIMORF [Concomitant]
     Active Substance: MORPHINE SULFATE
     Indication: PAIN
     Dosage: UNK, BID
     Route: 048
     Dates: start: 202011

REACTIONS (11)
  - Constipation [Recovering/Resolving]
  - Dry skin [Recovering/Resolving]
  - Urinary tract infection [Recovering/Resolving]
  - Movement disorder [Recovering/Resolving]
  - Chromaturia [Recovering/Resolving]
  - Malaise [Recovering/Resolving]
  - Blood urine present [Recovered/Resolved]
  - Metastases to spine [Unknown]
  - Pyuria [Not Recovered/Not Resolved]
  - Pain [Unknown]
  - Urine viscosity increased [Recovering/Resolving]

NARRATIVE: CASE EVENT DATE: 20210325
